FAERS Safety Report 12280992 (Version 2)
Quarter: 2016Q2

REPORT INFORMATION
  Report Type: Report from Study
  Country: JP (occurrence: JP)
  Receive Date: 20160419
  Receipt Date: 20160421
  Transmission Date: 20160815
  Serious: Yes (Other)
  Sender: FDA-Public Use
  Company Number: JP-JNJFOC-20160413912

PATIENT
  Age: 49 Year
  Sex: Male
  Weight: 61 kg

DRUGS (1)
  1. YONDELIS [Suspect]
     Active Substance: TRABECTEDIN
     Indication: CLEAR CELL SARCOMA OF SOFT TISSUE
     Dosage: CYCLE 1, A 24-HOUR INFUSION
     Route: 041

REACTIONS (2)
  - Nausea [Unknown]
  - Liver disorder [Unknown]

NARRATIVE: CASE EVENT DATE: 201602
